FAERS Safety Report 7053182-X (Version None)
Quarter: 2010Q4

REPORT INFORMATION
  Report Type: 
  Country: None (occurrence: None)
  Receive Date: 20101020
  Receipt Date: 20101008
  Transmission Date: 20110411
  Serious: Yes (Hospitalization)
  Sender: FDA-Public Use
  Company Number: JP-JNJFOC-20101001063

PATIENT
  Sex: Female
  Weight: 42 kg

DRUGS (7)
  1. REMICADE [Suspect]
     Indication: RHEUMATOID ARTHRITIS
     Route: 042
  2. REMICADE [Suspect]
     Route: 042
  3. REMICADE [Suspect]
     Route: 042
  4. RHEUMATREX [Suspect]
     Indication: RHEUMATOID ARTHRITIS
     Route: 048
  5. HYPEN [Concomitant]
     Route: 048
  6. MUCOSTA [Concomitant]
     Route: 048
  7. CORTICOSTEROID [Concomitant]

REACTIONS (3)
  - FEELING ABNORMAL [None]
  - INTERSTITIAL LUNG DISEASE [None]
  - SPINAL COMPRESSION FRACTURE [None]
